FAERS Safety Report 20549508 (Version 10)
Quarter: 2023Q4

REPORT INFORMATION
  Report Type: Other
  Country: CA (occurrence: None)
  Receive Date: 20220303
  Receipt Date: 20231205
  Transmission Date: 20240109
  Serious: Yes (Other)
  Sender: FDA-Public Use
  Company Number: CA-ROCHE-3036426

PATIENT
  Age: 39 Year
  Sex: Female

DRUGS (17)
  1. OCREVUS [Suspect]
     Active Substance: OCRELIZUMAB
     Indication: Relapsing-remitting multiple sclerosis
     Dosage: 300 MG AT DAY 0 AND 14, THEN 600 MG EVERY 6 MONTH
     Route: 042
     Dates: start: 20201007
  2. MACROBID [Suspect]
     Active Substance: NITROFURANTOIN\NITROFURANTOIN MONOHYDRATE
     Indication: Cystitis
     Route: 065
  3. MINOCYCLINE [Suspect]
     Active Substance: MINOCYCLINE HYDROCHLORIDE
     Indication: Product used for unknown indication
     Route: 065
  4. TETRACYCLINE [Suspect]
     Active Substance: TETRACYCLINE
     Indication: Cystitis
     Route: 065
  5. LAMOTRIGINE [Concomitant]
     Active Substance: LAMOTRIGINE
  6. PROZAC [Concomitant]
     Active Substance: FLUOXETINE HYDROCHLORIDE
  7. BACLOFEN [Concomitant]
     Active Substance: BACLOFEN
  8. DIAZEPAM [Concomitant]
     Active Substance: DIAZEPAM
  9. BACLOFEN [Concomitant]
     Active Substance: BACLOFEN
  10. HERBALS\TURMERIC [Concomitant]
     Active Substance: HERBALS\TURMERIC
  11. ALMOTRIPTAN [Concomitant]
     Active Substance: ALMOTRIPTAN
     Indication: Migraine
  12. KETOROLAC [Concomitant]
     Active Substance: KETOROLAC TROMETHAMINE
     Route: 058
  13. CEPHALEXIN [Concomitant]
     Active Substance: CEPHALEXIN
     Dosage: QID FOR 7 DAYS
  14. LAMOTRIGINE [Concomitant]
     Active Substance: LAMOTRIGINE
  15. TRAMADOL [Concomitant]
     Active Substance: TRAMADOL\TRAMADOL HYDROCHLORIDE
  16. METRONIDAZOLE [Concomitant]
     Active Substance: METRONIDAZOLE
  17. DEXAMETHASONE [Concomitant]
     Active Substance: DEXAMETHASONE

REACTIONS (19)
  - Multiple sclerosis [Unknown]
  - COVID-19 [Unknown]
  - Cystitis [Not Recovered/Not Resolved]
  - Abdominal pain upper [Recovering/Resolving]
  - Dehydration [Recovered/Resolved]
  - Oropharyngeal pain [Not Recovered/Not Resolved]
  - Sneezing [Not Recovered/Not Resolved]
  - Frustration tolerance decreased [Recovered/Resolved]
  - Localised infection [Not Recovered/Not Resolved]
  - Toothache [Recovered/Resolved]
  - Anal incontinence [Recovered/Resolved]
  - Fall [Unknown]
  - Diarrhoea [Unknown]
  - Tooth disorder [Unknown]
  - Stress [Not Recovered/Not Resolved]
  - Gait disturbance [Recovered/Resolved]
  - Drug hypersensitivity [Unknown]
  - Gastritis [Unknown]
  - Arthralgia [Unknown]

NARRATIVE: CASE EVENT DATE: 20220118
